FAERS Safety Report 10037385 (Version 9)
Quarter: 2024Q4

REPORT INFORMATION
  Report Type: Spontaneous
  Country: GB (occurrence: GB)
  Receive Date: 20140326
  Receipt Date: 20241111
  Transmission Date: 20250114
  Serious: Yes (Disabling, Other)
  Sender: ACCORD
  Company Number: GB-ACCORD-022755

PATIENT
  Age: 72 Year
  Sex: Female
  Weight: 64.3 kg

DRUGS (8)
  1. ANASTROZOLE [Interacting]
     Active Substance: ANASTROZOLE
     Indication: Breast cancer
     Dosage: ANASTAZOLE PACK NO:1040431625896
     Route: 048
     Dates: start: 20130805, end: 20130902
  2. OMEPRAZOLE [Interacting]
     Active Substance: OMEPRAZOLE
     Indication: Dyspepsia
     Dates: start: 20120804, end: 20121226
  3. ANASTROZOLE [Interacting]
     Active Substance: ANASTROZOLE
     Indication: Breast cancer
     Dosage: ALSO RECEIVED FROM 02-SEP-2013 TO 16-JUN-2014
     Route: 048
     Dates: start: 20120402, end: 20130804
  4. ZINC [Concomitant]
     Active Substance: ZINC
     Route: 048
  5. VITAMIN B12 [Concomitant]
     Active Substance: CYANOCOBALAMIN
  6. RANITIDINE [Concomitant]
     Active Substance: RANITIDINE
     Dosage: AS NECESSARY
     Route: 048
  7. ANASTROZOLE [Interacting]
     Active Substance: ANASTROZOLE
     Indication: Breast cancer
     Route: 048
     Dates: start: 20130902, end: 20140616
  8. OMEPRAZOLE [Interacting]
     Active Substance: OMEPRAZOLE
     Indication: Dyspepsia
     Dates: start: 20120604, end: 20120624

REACTIONS (65)
  - Muscle swelling [Unknown]
  - Muscle strain [Unknown]
  - Dry mouth [Unknown]
  - Vulvovaginal dryness [Unknown]
  - Myalgia [Unknown]
  - Diarrhoea [Unknown]
  - Pain in extremity [Unknown]
  - Dry skin [Unknown]
  - Skin exfoliation [Unknown]
  - Skin discolouration [Unknown]
  - Haemorrhage [Unknown]
  - Sensitive skin [Unknown]
  - Paraesthesia oral [Not Recovered/Not Resolved]
  - Musculoskeletal stiffness [Unknown]
  - Dyspepsia [Recovering/Resolving]
  - Vision blurred [Not Recovered/Not Resolved]
  - Arthralgia [Unknown]
  - Fall [Unknown]
  - Paraesthesia [Unknown]
  - Abdominal pain [Unknown]
  - Abdominal mass [Unknown]
  - Emotional disorder [Unknown]
  - Alopecia [Unknown]
  - Pruritus [Not Recovered/Not Resolved]
  - Urinary incontinence [Not Recovered/Not Resolved]
  - Urinary tract infection [Unknown]
  - Balance disorder [Unknown]
  - Drug interaction [Unknown]
  - Dysstasia [Recovering/Resolving]
  - Abnormal faeces [Recovering/Resolving]
  - Axillary mass [Recovering/Resolving]
  - Vomiting [Recovering/Resolving]
  - Asthenia [Recovered/Resolved]
  - Muscle tightness [Recovering/Resolving]
  - Muscular weakness [Recovering/Resolving]
  - Hiatus hernia [Recovering/Resolving]
  - Anal incontinence [Recovering/Resolving]
  - Gait disturbance [Unknown]
  - Bedridden [Not Recovered/Not Resolved]
  - Burning sensation [Recovering/Resolving]
  - Epigastric discomfort [Unknown]
  - Product substitution issue [Unknown]
  - Hot flush [Recovering/Resolving]
  - Joint stiffness [Unknown]
  - Hypoaesthesia oral [Not Recovered/Not Resolved]
  - Insomnia [Unknown]
  - Macrocytosis [Unknown]
  - Peripheral swelling [Unknown]
  - Magnesium deficiency [Unknown]
  - Skin atrophy [Unknown]
  - Psychiatric symptom [Recovered/Resolved]
  - Neuropathy peripheral [Not Recovered/Not Resolved]
  - Night sweats [Unknown]
  - Cyanosis [Unknown]
  - Wrist fracture [Unknown]
  - Lymphadenopathy [Not Recovered/Not Resolved]
  - Arthritis [Not Recovered/Not Resolved]
  - Drug hypersensitivity [Unknown]
  - Withdrawal syndrome [Unknown]
  - Reflux gastritis [Unknown]
  - Dermatitis [Unknown]
  - Blister [Unknown]
  - Foot deformity [Recovered/Resolved]
  - Bladder irritation [Not Recovered/Not Resolved]
  - Endometrial cancer [Unknown]

NARRATIVE: CASE EVENT DATE: 20120101
